FAERS Safety Report 16716752 (Version 4)
Quarter: 2020Q4

REPORT INFORMATION
  Report Type: Report from Study
  Country: GB (occurrence: GB)
  Receive Date: 20190819
  Receipt Date: 20201006
  Transmission Date: 20210113
  Serious: Yes (Hospitalization)
  Sender: FDA-Public Use
  Company Number: GB-ROCHE-2372961

PATIENT
  Age: 71 Year
  Sex: Male
  Weight: 63.4 kg

DRUGS (25)
  1. ATEZOLIZUMAB. [Suspect]
     Active Substance: ATEZOLIZUMAB
     Indication: NON-SMALL CELL LUNG CANCER
     Dosage: ON 28/JUN/2019, HE RECEIVED MOST RECENT DOSE OF BLINDED ATEZOLIZUMAB PRIOR TO ONSET OF SERIOUS ADVER
     Route: 042
     Dates: start: 20190510
  2. CARBOPLATIN. [Suspect]
     Active Substance: CARBOPLATIN
     Indication: NON-SMALL CELL LUNG CANCER
     Dosage: DOSE: AREA UNDER CURVE OF 6 MG/ML/MIN?ON 28/JUN/2019, HE RECEIVED MOST RECENT DOSE OF CARBOPLATION (
     Route: 042
     Dates: start: 20190510
  3. LEVOFLOXACIN. [Concomitant]
     Active Substance: LEVOFLOXACIN
     Indication: GASTRIC ULCER
     Route: 048
     Dates: start: 20190802, end: 20190807
  4. SANDO K [Concomitant]
     Indication: BLOOD POTASSIUM DECREASED
     Dosage: 2 OTHER
     Route: 048
     Dates: start: 20190802, end: 20190806
  5. MAGNESIUM CITRATE. [Concomitant]
     Active Substance: MAGNESIUM CITRATE
     Route: 048
     Dates: start: 20190628, end: 20190726
  6. DOMPERIDONE [Concomitant]
     Active Substance: DOMPERIDONE
     Route: 048
     Dates: start: 20190511, end: 20190630
  7. HYPROMELLOSE [Concomitant]
     Active Substance: HYPROMELLOSES
     Indication: EYE PRURITUS
     Route: 047
     Dates: start: 20190530
  8. AMOXICILLIN. [Concomitant]
     Active Substance: AMOXICILLIN
     Route: 042
     Dates: start: 20190730, end: 20190802
  9. MAGNESIUM ASPARTATE [Concomitant]
     Active Substance: MAGNESIUM ASPARTATE
     Dosage: 10 (MEDICATION DOSE UNIT: OTHER)
     Route: 048
     Dates: start: 20190802, end: 20190806
  10. FOLIC ACID. [Concomitant]
     Active Substance: FOLIC ACID
     Route: 048
     Dates: start: 20190507, end: 20190719
  11. APREPITANT. [Concomitant]
     Active Substance: APREPITANT
     Indication: NAUSEA
     Route: 048
     Dates: start: 20190530
  12. MACROGOL [Concomitant]
     Active Substance: POLYETHYLENE GLYCOLS
     Indication: CONSTIPATION
     Dosage: 1 OTHER
     Route: 048
     Dates: start: 20190716
  13. MAGNESIUM CITRATE. [Concomitant]
     Active Substance: MAGNESIUM CITRATE
     Indication: BLOOD MAGNESIUM DECREASED
     Route: 048
     Dates: start: 20190621
  14. MAGNESIUM CITRATE. [Concomitant]
     Active Substance: MAGNESIUM CITRATE
     Indication: BLOOD MAGNESIUM DECREASED
     Dates: start: 20190628, end: 20190726
  15. RED BLOOD CELLS [Concomitant]
     Active Substance: HUMAN RED BLOOD CELL
     Dosage: 2 UNIT
     Route: 042
     Dates: start: 20190730, end: 20190802
  16. AMOXICILLIN. [Concomitant]
     Active Substance: AMOXICILLIN
     Indication: GASTRIC ULCER
     Route: 048
     Dates: start: 20190802, end: 20190807
  17. MAGNESIUM ASPARTATE [Concomitant]
     Active Substance: MAGNESIUM ASPARTATE
     Indication: BLOOD MAGNESIUM DECREASED
     Route: 048
     Dates: start: 20190802, end: 20190806
  18. CO-AMOXICLAV [Concomitant]
     Active Substance: AMOXICILLIN\CLAVULANATE POTASSIUM
     Route: 048
     Dates: start: 20190716, end: 20190726
  19. MOVICOL [Concomitant]
     Active Substance: POLYETHYLENE GLYCOL 3350\POTASSIUM CHLORIDE\SODIUM BICARBONATE\SODIUM CHLORIDE
     Indication: CONSTIPATION
     Route: 065
     Dates: start: 20190520, end: 20191114
  20. DEXAMETHASONE. [Concomitant]
     Active Substance: DEXAMETHASONE
     Route: 048
     Dates: start: 20190530, end: 20190630
  21. PEMETREXED. [Suspect]
     Active Substance: PEMETREXED
     Indication: NON-SMALL CELL LUNG CANCER
     Dosage: ON 28/JUN/2019, HE RECEIVED MOST RECENT DOSE OF PEMETREXED  (875 MG) PRIOR TO ONSET OF SERIOUS ADVER
     Route: 042
     Dates: start: 20190510
  22. ADCAL (UNITED KINGDOM) [Concomitant]
     Active Substance: CALCIUM CARBONATE
     Indication: BLOOD CALCIUM DECREASED
     Route: 048
     Dates: start: 20190627
  23. RED BLOOD CELLS [Concomitant]
     Active Substance: HUMAN RED BLOOD CELL
     Dosage: 2 UNIT
     Route: 042
     Dates: start: 20190716, end: 20190721
  24. OMEPRAZOLE. [Concomitant]
     Active Substance: OMEPRAZOLE
     Indication: GASTRIC ULCER
     Route: 048
     Dates: start: 20190730, end: 20190819
  25. RANITIDINE. [Concomitant]
     Active Substance: RANITIDINE
     Route: 048
     Dates: start: 20190510, end: 20190703

REACTIONS (1)
  - Upper gastrointestinal haemorrhage [Recovered/Resolved]

NARRATIVE: CASE EVENT DATE: 20190730
